FAERS Safety Report 13754484 (Version 1)
Quarter: 2017Q3

REPORT INFORMATION
  Report Type: Spontaneous
  Country: GB (occurrence: GB)
  Receive Date: 20170714
  Receipt Date: 20170714
  Transmission Date: 20171127
  Serious: Yes (Death, Hospitalization, Other)
  Sender: FDA-Public Use
  Company Number: GB-JNJFOC-20170704545

PATIENT

DRUGS (2)
  1. IBUPROFEN. [Suspect]
     Active Substance: IBUPROFEN
     Indication: RHEUMATOID ARTHRITIS
     Route: 065
  2. IBUPROFEN. [Suspect]
     Active Substance: IBUPROFEN
     Indication: OSTEOARTHRITIS
     Route: 065

REACTIONS (18)
  - Upper gastrointestinal perforation [Fatal]
  - Gastrointestinal obstruction [Fatal]
  - Cardiac failure [Unknown]
  - Gastrointestinal ulcer [Unknown]
  - Pulmonary embolism [Unknown]
  - Myocardial infarction [Unknown]
  - Drug intolerance [Unknown]
  - Cardiovascular disorder [Fatal]
  - Peripheral ischaemia [Unknown]
  - Renal failure [Unknown]
  - Acute coronary syndrome [Unknown]
  - Rectal haemorrhage [Unknown]
  - Gastritis [Unknown]
  - Adverse event [Unknown]
  - Upper gastrointestinal haemorrhage [Unknown]
  - Death [Fatal]
  - Cerebrovascular accident [Unknown]
  - Drug ineffective [Unknown]
